FAERS Safety Report 17308950 (Version 1)
Quarter: 2020Q1

REPORT INFORMATION
  Report Type: Spontaneous
  Country: US (occurrence: US)
  Receive Date: 20200123
  Receipt Date: 20200123
  Transmission Date: 20200409
  Serious: No
  Sender: FDA-Public Use
  Company Number: US-RISING PHARMACEUTICALS, INC.-2019RIS00572

PATIENT
  Sex: Male
  Weight: 126.98 kg

DRUGS (2)
  1. PREGABALIN. [Suspect]
     Active Substance: PREGABALIN
     Indication: HYPOAESTHESIA
  2. UNSPECIFIED OPIOIDS [Concomitant]

REACTIONS (5)
  - Performance status decreased [Unknown]
  - Drug ineffective for unapproved indication [Unknown]
  - Product substitution issue [Unknown]
  - Weight increased [Not Recovered/Not Resolved]
  - Hypoaesthesia [Unknown]
